FAERS Safety Report 24935501 (Version 1)
Quarter: 2025Q1

REPORT INFORMATION
  Report Type: Spontaneous
  Country: DE (occurrence: DE)
  Receive Date: 20250206
  Receipt Date: 20250206
  Transmission Date: 20250409
  Serious: Yes (Hospitalization)
  Sender: SANDOZ
  Company Number: DE-ROCHE-10000179473

PATIENT
  Age: 68 Year
  Sex: Male
  Weight: 75 kg

DRUGS (35)
  1. CYCLOPHOSPHAMIDE [Suspect]
     Active Substance: CYCLOPHOSPHAMIDE
     Indication: Diffuse large B-cell lymphoma
     Dosage: 1537.5 MG, TIW (ON 30-DEC-2024, RECEIVED THE MOST RECENT DOSE OF CYCLOPHOSPHAMIDE OF 1492.50 MG  PRI
     Route: 042
     Dates: start: 20240910
  2. DOXORUBICIN [Suspect]
     Active Substance: DOXORUBICIN
     Indication: Diffuse large B-cell lymphoma
     Dosage: 102.5 MG, TIW (ON 30-DEC-2024, RECEIVED THE MOST RECENT DOSE OF DOXORUBICIN OF 99.50 MG  PRIOR TO AE
     Route: 042
     Dates: start: 20240910
  3. GLOFITAMAB [Suspect]
     Active Substance: GLOFITAMAB
     Indication: Diffuse large B-cell lymphoma
     Dosage: 2.5 MG, TIW (ON 07-JAN-2025, RECEIVED THE MOST RECENT DOSE OF GLOFITAMAB OF 30 MG  PRIOR TO AE/SAE.)
     Route: 042
     Dates: start: 20241008
  4. POLATUZUMAB VEDOTIN [Suspect]
     Active Substance: POLATUZUMAB VEDOTIN
     Indication: Diffuse large B-cell lymphoma
     Dosage: 153 MG, TIW (ON 31-DEC-2024, RECEIVED THE MOST RECENT DOSE OF POLATUZUMAB VEDOTIN OF 142.20 MG  PRIO
     Route: 042
     Dates: start: 20240911
  5. RITUXIMAB [Suspect]
     Active Substance: RITUXIMAB
     Indication: Diffuse large B-cell lymphoma
     Dosage: 768.75 MG, TIW (ON 30-DEC-2024, RECEIVED THE MOST RECENT DOSE OF RITUXIMAB OF 746.25 MG PRIOR TO AE/
     Route: 042
     Dates: start: 20240910
  6. ACYCLOVIR [Concomitant]
     Active Substance: ACYCLOVIR
     Indication: Pain
     Dosage: 400 MG, QD (GIVEN FOR PROPHYLAXIS IS YES)
     Route: 048
     Dates: start: 20240909
  7. ALLOPURINOL [Concomitant]
     Active Substance: ALLOPURINOL
     Indication: Antibiotic prophylaxis
     Dosage: 300 MG, QD (GIVEN FOR PROPHYLAXIS IS YES)
     Route: 048
     Dates: start: 20240910
  8. APREPITANT [Concomitant]
     Active Substance: APREPITANT
     Dosage: 125 MG, QD (GIVEN FOR PROPHYLAXIS IS YES)
     Route: 048
     Dates: start: 20241209, end: 20241209
  9. APREPITANT [Concomitant]
     Active Substance: APREPITANT
     Indication: Product used for unknown indication
     Route: 048
     Dates: start: 20241230, end: 20241230
  10. APREPITANT [Concomitant]
     Active Substance: APREPITANT
     Dosage: 80 MG, QD (GIVEN FOR PROPHYLAXIS IS YES)
     Route: 048
     Dates: start: 20241210, end: 20241211
  11. APREPITANT [Concomitant]
     Active Substance: APREPITANT
     Dosage: 80 MG, QD (GIVEN FOR PROPHYLAXIS IS YES)
     Route: 048
     Dates: start: 20241231, end: 20250101
  12. CLEMASTINE [Concomitant]
     Active Substance: CLEMASTINE
     Dosage: 2 MG, QD
     Route: 042
     Dates: start: 20241209, end: 20241209
  13. CLEMASTINE [Concomitant]
     Active Substance: CLEMASTINE
     Indication: Product used for unknown indication
     Route: 042
     Dates: start: 20241216, end: 20241216
  14. CLEMASTINE [Concomitant]
     Active Substance: CLEMASTINE
     Route: 042
     Dates: start: 20250107, end: 20250107
  15. DEXAMETHASONE [Concomitant]
     Active Substance: DEXAMETHASONE
     Dosage: 10 MG, QID GIVEN FOR PROPHYLAXIS IS YES
     Route: 042
     Dates: start: 20241219, end: 20241220
  16. DEXAMETHASONE [Concomitant]
     Active Substance: DEXAMETHASONE
     Indication: Cytokine release syndrome
     Route: 042
     Dates: start: 20241216, end: 20241216
  17. DEXAMETHASONE [Concomitant]
     Active Substance: DEXAMETHASONE
     Route: 042
     Dates: start: 20250107, end: 20250107
  18. GRANISETRON [Concomitant]
     Active Substance: GRANISETRON
     Route: 042
     Dates: start: 20241230, end: 20241230
  19. GRANISETRON [Concomitant]
     Active Substance: GRANISETRON
     Indication: Cytokine release syndrome
     Route: 042
     Dates: start: 20241209, end: 20241209
  20. LACTULOSE [Concomitant]
     Active Substance: LACTULOSE
     Indication: Product used for unknown indication
     Route: 065
     Dates: start: 20250111, end: 20250111
  21. MESNA [Concomitant]
     Active Substance: MESNA
     Indication: Product used for unknown indication
     Route: 042
     Dates: start: 20241230, end: 20241230
  22. METAMIZOL [Concomitant]
     Active Substance: METAMIZOLE SODIUM
     Indication: Neutropenia
     Route: 048
     Dates: start: 20240909
  23. ACETAMINOPHEN [Concomitant]
     Active Substance: ACETAMINOPHEN
     Indication: Product used for unknown indication
     Dosage: 1000 MG, QD (GIVEN FOR PROPHYLAXIS IS YES)
     Route: 048
     Dates: start: 20241209, end: 20241210
  24. ACETAMINOPHEN [Concomitant]
     Active Substance: ACETAMINOPHEN
     Route: 048
     Dates: start: 20241217, end: 20241223
  25. ACETAMINOPHEN [Concomitant]
     Active Substance: ACETAMINOPHEN
     Route: 048
     Dates: start: 20250107, end: 20250107
  26. ACETAMINOPHEN [Concomitant]
     Active Substance: ACETAMINOPHEN
     Route: 048
     Dates: start: 20241216, end: 20241216
  27. ACETAMINOPHEN [Concomitant]
     Active Substance: ACETAMINOPHEN
     Route: 048
  28. PEGFILGRASTIM [Concomitant]
     Active Substance: PEGFILGRASTIM
     Indication: Product used for unknown indication
     Route: 042
     Dates: start: 20250101, end: 20250101
  29. PIPERACILLIN AND TAZOBACTAM [Concomitant]
     Active Substance: PIPERACILLIN SODIUM\TAZOBACTAM SODIUM
     Indication: Product used for unknown indication
     Route: 042
     Dates: start: 20241217, end: 20241223
  30. PIPERACILLIN AND TAZOBACTAM [Concomitant]
     Active Substance: PIPERACILLIN SODIUM\TAZOBACTAM SODIUM
     Route: 042
     Dates: start: 20250110
  31. SULFAMETHOXAZOLE\TRIMETHOPRIM [Concomitant]
     Active Substance: SULFAMETHOXAZOLE\TRIMETHOPRIM
     Indication: Constipation
     Route: 048
     Dates: start: 20241204
  32. TINZAPARIN [Concomitant]
     Active Substance: TINZAPARIN
     Indication: Oropharyngeal pain
     Dosage: 4500 IU, QD (GIVEN FOR PROPHYLAXIS IS YES)
     Route: 058
     Dates: start: 20241121
  33. TINZAPARIN [Concomitant]
     Active Substance: TINZAPARIN
     Dosage: 4500 IU, QD (GIVEN FOR PROPHYLAXIS IS YES)
     Route: 058
     Dates: start: 20241219, end: 20241222
  34. TINZAPARIN [Concomitant]
     Active Substance: TINZAPARIN
     Dosage: 4500 IU, QD (GIVEN FOR PROPHYLAXIS IS YES)
     Route: 058
     Dates: start: 20241230, end: 20241231
  35. TINZAPARIN [Concomitant]
     Active Substance: TINZAPARIN
     Dosage: 4500 IU, QD (GIVEN FOR PROPHYLAXIS IS YES)
     Route: 058
     Dates: start: 20250107

REACTIONS (2)
  - Cytokine release syndrome [Recovered/Resolved]
  - Neutropenia [Recovered/Resolved]

NARRATIVE: CASE EVENT DATE: 20250106
